FAERS Safety Report 18623436 (Version 4)
Quarter: 2021Q2

REPORT INFORMATION
  Report Type: Report from Study
  Country: CA (occurrence: CA)
  Receive Date: 20201216
  Receipt Date: 20210406
  Transmission Date: 20210717
  Serious: Yes (Hospitalization, Other)
  Sender: FDA-Public Use
  Company Number: NVSC2020CA323338

PATIENT
  Sex: Female

DRUGS (4)
  1. SANDOSTATIN LAR DEPOT [Suspect]
     Active Substance: OCTREOTIDE ACETATE
  2. SANDOSTATIN LAR DEPOT [Suspect]
     Active Substance: OCTREOTIDE ACETATE
  3. METOPROLOL TEVA [Concomitant]
     Active Substance: METOPROLOL
     Indication: PRODUCT USED FOR UNKNOWN INDICATION
     Dosage: 1 DF, QD
     Route: 048
  4. SANDOSTATIN LAR DEPOT [Suspect]
     Active Substance: OCTREOTIDE ACETATE
     Indication: CARCINOID TUMOUR
     Dosage: 30 MG, QMO (4 WEEKS)
     Route: 030
     Dates: start: 20201104

REACTIONS (7)
  - Second primary malignancy [Unknown]
  - Eye disorder [Unknown]
  - Graft infection [Unknown]
  - Neoplasm malignant [Unknown]
  - Injection site haemorrhage [Unknown]
  - Nausea [Unknown]
  - Eye swelling [Unknown]

NARRATIVE: CASE EVENT DATE: 2020
